FAERS Safety Report 25761605 (Version 1)
Quarter: 2025Q3

REPORT INFORMATION
  Report Type: Spontaneous
  Country: EU (occurrence: EU)
  Receive Date: 20250904
  Receipt Date: 20250904
  Transmission Date: 20251021
  Serious: Yes (Hospitalization)
  Sender: NOVARTIS
  Company Number: None

PATIENT
  Age: 59 Year
  Sex: Male

DRUGS (6)
  1. LAMPRENE [Interacting]
     Active Substance: CLOFAZIMINE
     Indication: Tuberculosis
     Route: 048
     Dates: start: 20241226, end: 20250618
  2. DELAMANID [Interacting]
     Active Substance: DELAMANID
     Indication: Tuberculosis
     Dosage: 200 MG, QD
     Route: 048
     Dates: start: 20241226, end: 20250618
  3. DELAMANID [Interacting]
     Active Substance: DELAMANID
     Dosage: 200 MG, QD
     Route: 048
     Dates: start: 20250620, end: 20250706
  4. SIRTURO [Interacting]
     Active Substance: BEDAQUILINE FUMARATE
     Indication: Tuberculosis
     Route: 048
     Dates: start: 20241226
  5. LINEZOLID [Interacting]
     Active Substance: LINEZOLID
     Indication: Tuberculosis
     Route: 048
     Dates: start: 20241226
  6. METHADONE HYDROCHLORIDE [Interacting]
     Active Substance: METHADONE HYDROCHLORIDE
     Indication: Drug dependence
     Route: 048
     Dates: start: 20150101, end: 20250721

REACTIONS (2)
  - Electrocardiogram QT prolonged [Recovered/Resolved]
  - Drug interaction [Recovered/Resolved]

NARRATIVE: CASE EVENT DATE: 20241226
